FAERS Safety Report 20473398 (Version 1)
Quarter: 2022Q1

REPORT INFORMATION
  Report Type: Other
  Country: IT (occurrence: None)
  Receive Date: 20220215
  Receipt Date: 20220215
  Transmission Date: 20220423
  Serious: Yes (Other)
  Sender: FDA-Public Use
  Company Number: IT-ROCHE-3018304

PATIENT

DRUGS (2)
  1. CAPECITABINE [Suspect]
     Active Substance: CAPECITABINE
     Indication: Rectal cancer
     Route: 048
  2. FLUOROURACIL [Concomitant]
     Active Substance: FLUOROURACIL

REACTIONS (4)
  - Ileus [Unknown]
  - Anastomotic leak [Unknown]
  - Wound infection [Unknown]
  - Haemorrhage [Unknown]
